FAERS Safety Report 24066549 (Version 1)
Quarter: 2024Q3

REPORT INFORMATION
  Report Type: Spontaneous
  Country: US (occurrence: None)
  Receive Date: 20240709
  Receipt Date: 20240709
  Transmission Date: 20241017
  Serious: Yes (unspecified)
  Sender: Public
  Company Number: None

PATIENT
  Age: 10 Year
  Sex: Female
  Weight: 22.5 kg

DRUGS (3)
  1. SOGROYA [Suspect]
     Active Substance: SOMAPACITAN-BECO
     Indication: Growth hormone deficiency
     Route: 058
     Dates: start: 20240619, end: 20240620
  2. HUMATROP [Concomitant]
  3. NOROITROPIN [Concomitant]

REACTIONS (3)
  - Headache [None]
  - Syncope [None]
  - Papilloedema [None]

NARRATIVE: CASE EVENT DATE: 20240619
